FAERS Safety Report 5954133-9 (Version None)
Quarter: 2008Q4

REPORT INFORMATION
  Report Type: 
  Country: None (occurrence: None)
  Receive Date: 20081117
  Receipt Date: 20081111
  Transmission Date: 20090506
  Serious: Yes (Other)
  Sender: FDA-Public Use
  Company Number: CA-JNJFOC-20081006580

PATIENT
  Sex: Female

DRUGS (4)
  1. CONCERTA [Suspect]
     Indication: ATTENTION DEFICIT/HYPERACTIVITY DISORDER
     Route: 048
     Dates: start: 20070116, end: 20081001
  2. CIPRALEX [Concomitant]
  3. IMOVANE [Concomitant]
  4. FOSAMAX [Concomitant]

REACTIONS (1)
  - DEAFNESS [None]
